FAERS Safety Report 18612731 (Version 2)
Quarter: 2021Q1

REPORT INFORMATION
  Report Type: Report from Study
  Country: CZ (occurrence: CZ)
  Receive Date: 20201214
  Receipt Date: 20210104
  Transmission Date: 20210419
  Serious: Yes (Other)
  Sender: FDA-Public Use
  Company Number: CZ-MYLANLABS-2020M1101373

PATIENT
  Sex: Female

DRUGS (1)
  1. HULIO [Suspect]
     Active Substance: ADALIMUMAB-FKJP
     Indication: PSORIATIC ARTHROPATHY
     Dosage: 40 MILLIGRAM TWICE MONTHLY
     Route: 058
     Dates: start: 20191119, end: 20201117

REACTIONS (1)
  - Drug ineffective [Unknown]
